FAERS Safety Report 8887812 (Version 2)
Quarter: 2013Q2

REPORT INFORMATION
  Report Type: Spontaneous
  Country: LB (occurrence: LB)
  Receive Date: 20121106
  Receipt Date: 20130408
  Transmission Date: 20140414
  Serious: Yes (Death, Life-Threatening, Hospitalization, Other)
  Sender: FDA-Public Use
  Company Number: LB-CELGENEUS-093-21880-12100661

PATIENT
  Age: 69 Year
  Sex: Female

DRUGS (2)
  1. REVLIMID [Suspect]
     Indication: ACUTE MYELOID LEUKAEMIA
     Dosage: 10 MILLIGRAM
     Route: 048
     Dates: start: 20120506, end: 20120920
  2. PREDNISONE [Concomitant]
     Indication: ACUTE MYELOID LEUKAEMIA
     Dosage: 90 MILLIGRAM
     Route: 065
     Dates: start: 20120506

REACTIONS (2)
  - Cerebral haemorrhage [Fatal]
  - Acute myeloid leukaemia [Fatal]
